FAERS Safety Report 9398929 (Version 2)
Quarter: 2013Q3

REPORT INFORMATION
  Report Type: Spontaneous
  Country: CO (occurrence: CO)
  Receive Date: 20130712
  Receipt Date: 20130816
  Transmission Date: 20140515
  Serious: Yes (Other)
  Sender: FDA-Public Use
  Company Number: CO-VERTEX PHARMACEUTICALS INC-2013-007631

PATIENT
  Age: 37 Year
  Sex: Male
  Weight: 69 kg

DRUGS (5)
  1. INCIVO [Suspect]
     Indication: HEPATITIS C
     Dosage: 750 MG, TID
     Route: 048
     Dates: start: 20130524
  2. INTERFERON [Suspect]
     Indication: HEPATITIS C
     Dosage: 180 ?G, QW (AMPOULES)
     Route: 058
     Dates: start: 20130524
  3. RIBAVIRIN [Suspect]
     Indication: HEPATITIS C
     Dosage: 1000 MG, QD (200 MG FIVE TIMES A DAY)
     Route: 048
     Dates: start: 20130524
  4. ERYTHROPOIETIN [Concomitant]
     Indication: ANAEMIA
     Dosage: 10000 IU, UNK (AMPOULES)
     Route: 058
     Dates: start: 20130630
  5. ERYTHROPOIETIN [Concomitant]
     Dosage: 2000 IU, UNK (AMPOULES)
     Route: 058

REACTIONS (4)
  - Tachycardia [Unknown]
  - Anaemia [Recovered/Resolved]
  - Pruritus [Unknown]
  - Rash [Unknown]
